FAERS Safety Report 24681442 (Version 1)
Quarter: 2024Q4

REPORT INFORMATION
  Report Type: Report from Study
  Country: BR (occurrence: BR)
  Receive Date: 20241129
  Receipt Date: 20241129
  Transmission Date: 20250115
  Serious: Yes (Other)
  Sender: ABBVIE
  Company Number: BR-ABBVIE-6018378

PATIENT
  Age: 53 Year
  Sex: Female

DRUGS (2)
  1. BOTOX [Suspect]
     Active Substance: ONABOTULINUMTOXINA
     Indication: Migraine
     Dosage: TIME INTERVAL: AS NECESSARY: EVERY 1 YEAR
     Route: 030
     Dates: start: 2016, end: 2016
  2. CANNABIDIOL [Concomitant]
     Active Substance: CANNABIDIOL
     Indication: Migraine
     Route: 065

REACTIONS (3)
  - Hernia [Recovered/Resolved]
  - Migraine [Recovering/Resolving]
  - Hysterectomy [Recovered/Resolved]

NARRATIVE: CASE EVENT DATE: 20220101
